FAERS Safety Report 9789156 (Version 1)
Quarter: 2013Q4

REPORT INFORMATION
  Report Type: Report from Study
  Country: JP (occurrence: JP)
  Receive Date: 20131230
  Receipt Date: 20131230
  Transmission Date: 20140711
  Serious: Yes (Other)
  Sender: FDA-Public Use
  Company Number: JP-GILEAD-2013-0090833

PATIENT
  Age: 31 Year
  Sex: Male

DRUGS (7)
  1. TRUVADA [Suspect]
     Indication: HIV INFECTION
     Dosage: 1 DF, QD
     Route: 048
     Dates: start: 20101007, end: 20110802
  2. TRUVADA [Suspect]
     Dosage: 1 DF, QD
     Route: 048
     Dates: start: 20111101
  3. PREZISTA [Suspect]
     Indication: HIV INFECTION
     Dosage: 1200 MG, QD
     Route: 048
     Dates: start: 20120117
  4. NORVIR [Suspect]
     Indication: HIV INFECTION
     Route: 048
     Dates: start: 20110628, end: 20120116
  5. NORVIR [Suspect]
     Dosage: 200 MG, QD
     Route: 048
     Dates: start: 20120117
  6. CRESTOR [Concomitant]
     Indication: HYPERTRIGLYCERIDAEMIA
     Route: 048
     Dates: start: 20100506
  7. BENAMBAX [Concomitant]
     Indication: ANTIFUNGAL PROPHYLAXIS
     Route: 041
     Dates: start: 20101116

REACTIONS (2)
  - AIDS dementia complex [Not Recovered/Not Resolved]
  - Hepatic function abnormal [Not Recovered/Not Resolved]
